FAERS Safety Report 8928981 (Version 2)
Quarter: 2013Q1

REPORT INFORMATION
  Report Type: Spontaneous
  Country: GB (occurrence: None)
  Receive Date: 20121120
  Receipt Date: 20121203
  Transmission Date: 20140127
  Serious: Yes (Other)
  Sender: FDA-Public Use
  Company Number: AUR-APL-2012-04906

PATIENT
  Sex: 0

DRUGS (1)
  1. MIRTAZAPINE (MIRTAZAPINE) [Suspect]
     Indication: DEPRESSION

REACTIONS (10)
  - Aggression [None]
  - Agitation [None]
  - Restless legs syndrome [None]
  - Gait disturbance [None]
  - Malaise [None]
  - Tearfulness [None]
  - Diarrhoea [None]
  - Coordination abnormal [None]
  - Feeling abnormal [None]
  - Depression [None]
